FAERS Safety Report 5884025-5 (Version None)
Quarter: 2008Q3

REPORT INFORMATION
  Report Type: 
  Country: None (occurrence: None)
  Receive Date: 20080915
  Receipt Date: 20080904
  Transmission Date: 20090109
  Serious: Yes (Hospitalization)
  Sender: FDA-Public Use
  Company Number: FR-JNJFOC-20080901267

PATIENT
  Age: 79 Year
  Sex: Male

DRUGS (7)
  1. LEVAQUIN [Suspect]
     Indication: INFECTION
     Route: 048
  2. CLAFORAN [Interacting]
     Indication: INFECTION
     Route: 065
  3. SINTROM [Interacting]
     Route: 048
  4. SINTROM [Interacting]
     Indication: ATRIAL FIBRILLATION
     Route: 048
  5. PERFALGAN [Concomitant]
     Route: 042
  6. AERIOUS [Concomitant]
  7. LASIX [Concomitant]

REACTIONS (2)
  - DRUG INTERACTION [None]
  - INTERNATIONAL NORMALISED RATIO INCREASED [None]
